FAERS Safety Report 16721701 (Version 1)
Quarter: 2019Q3

REPORT INFORMATION
  Report Type: Spontaneous
  Country: FR (occurrence: FR)
  Receive Date: 20190820
  Receipt Date: 20190820
  Transmission Date: 20191005
  Serious: Yes (Other)
  Sender: FDA-Public Use
  Company Number: FR-MYLANLABS-2019M1075640

PATIENT
  Age: 32 Year
  Sex: Female

DRUGS (3)
  1. VOGALENE [Suspect]
     Active Substance: METOPIMAZINE
     Indication: PAIN
     Dosage: NON RENSEIGN?E
     Route: 048
     Dates: start: 20190220, end: 20190220
  2. MISOONE [Suspect]
     Active Substance: MISOPROSTOL
     Indication: ABORTION INDUCED
     Dosage: 02 DOSAGE FORM, QD
     Route: 002
     Dates: start: 20190220, end: 20190220
  3. IBUPROFEN. [Suspect]
     Active Substance: IBUPROFEN
     Indication: PAIN
     Dosage: 400 MILLIGRAM
     Route: 048
     Dates: start: 20190220, end: 20190220

REACTIONS (6)
  - Angioedema [Recovering/Resolving]
  - Oropharyngeal oedema [Recovered/Resolved]
  - Incorrect dose administered [Unknown]
  - Incorrect route of product administration [Unknown]
  - Dysphagia [Recovered/Resolved]
  - Tongue oedema [Recovered/Resolved]

NARRATIVE: CASE EVENT DATE: 20190220
